FAERS Safety Report 10071103 (Version 2)
Quarter: 2014Q2

REPORT INFORMATION
  Report Type: Spontaneous
  Country: IE (occurrence: IE)
  Receive Date: 20140410
  Receipt Date: 20140528
  Transmission Date: 20141212
  Serious: Yes (Congenital Anomaly, Other)
  Sender: FDA-Public Use
  Company Number: IE-JNJFOC-20140403155

PATIENT
  Sex: Male
  Weight: 6.85 kg

DRUGS (3)
  1. PREZISTA [Suspect]
     Indication: HIV INFECTION
     Route: 064
  2. RITONAVIR [Suspect]
     Indication: HIV INFECTION
     Route: 064
  3. ISENTRESS [Suspect]
     Indication: HIV INFECTION
     Route: 064

REACTIONS (2)
  - Syndactyly [Unknown]
  - Foetal exposure during pregnancy [Recovered/Resolved]
